FAERS Safety Report 9142338 (Version 1)
Quarter: 2013Q1

REPORT INFORMATION
  Report Type: Spontaneous
  Country: SE (occurrence: SE)
  Receive Date: 20130306
  Receipt Date: 20130306
  Transmission Date: 20140127
  Serious: Yes (Hospitalization, Congenital Anomaly, Other)
  Sender: FDA-Public Use
  Company Number: SE-AMGEN-SWESP2013015303

PATIENT
  Sex: Female

DRUGS (3)
  1. ENBREL [Suspect]
     Dosage: 50 MG, WEEKLY
     Route: 064
     Dates: start: 20100709, end: 20101101
  2. ENBREL [Suspect]
     Dosage: 50 MG, WEEKLY
     Route: 064
     Dates: start: 20100709, end: 20101101
  3. SALAZOPYRIN [Concomitant]
     Dosage: UNK
     Route: 064

REACTIONS (3)
  - Maternal exposure during pregnancy [Unknown]
  - Congenital genitourinary abnormality [Unknown]
  - Urinary tract infection neonatal [Unknown]
